FAERS Safety Report 17792525 (Version 1)
Quarter: 2020Q2

REPORT INFORMATION
  Report Type: Spontaneous
  Country: AU (occurrence: AU)
  Receive Date: 20200515
  Receipt Date: 20200515
  Transmission Date: 20200714
  Serious: Yes (Hospitalization, Other)
  Sender: FDA-Public Use
  Company Number: AU-SHIRE-AU202016103

PATIENT

DRUGS (2)
  1. INTUNIV [Suspect]
     Active Substance: GUANFACINE HYDROCHLORIDE
     Indication: AUTISM SPECTRUM DISORDER
     Dosage: 1 MILLIGRAM, 2X/DAY:BID
     Route: 065
  2. INTUNIV [Suspect]
     Active Substance: GUANFACINE HYDROCHLORIDE
     Indication: NEURODEVELOPMENTAL DISORDER

REACTIONS (3)
  - Facial asymmetry [Recovered/Resolved]
  - Cerebrovascular accident [Recovered/Resolved]
  - Gait inability [Recovered/Resolved]
